FAERS Safety Report 5156028-X (Version None)
Quarter: 2006Q4

REPORT INFORMATION
  Report Type: 
  Country: None (occurrence: None)
  Receive Date: 20061122
  Receipt Date: 20061110
  Transmission Date: 20070319
  Serious: Yes (Other)
  Sender: FDA-Public Use
  Company Number: PHBS2006CH17389

PATIENT
  Age: 81 Year
  Sex: Female

DRUGS (1)
  1. ZOMETA [Suspect]
     Indication: HYPERCALCAEMIA OF MALIGNANCY
     Dosage: 4 MG, PER MONTH
     Route: 042
     Dates: start: 20060710

REACTIONS (7)
  - B-CELL LYMPHOMA [None]
  - HYPOAESTHESIA ORAL [None]
  - MENINGEAL DISORDER [None]
  - OSTEOLYSIS [None]
  - OSTEOPENIA [None]
  - OSTEOPOROSIS [None]
  - SENSORY LOSS [None]
